FAERS Safety Report 10506569 (Version 3)
Quarter: 2014Q4

REPORT INFORMATION
  Report Type: Spontaneous
  Country: GB (occurrence: GB)
  Receive Date: 20141009
  Receipt Date: 20141212
  Transmission Date: 20150528
  Serious: Yes (Other)
  Sender: FDA-Public Use
  Company Number: GB-AUROBINDO-AUR-APL-2014-10567

PATIENT
  Sex: Female

DRUGS (9)
  1. PHENOL. [Concomitant]
     Active Substance: PHENOL
     Indication: WOUND
     Dosage: UNK
     Route: 065
  2. MAGNESIUM SULFATE. [Concomitant]
     Active Substance: MAGNESIUM SULFATE
     Indication: WOUND
     Dosage: UNK
     Route: 065
  3. ALENDRONIC ACID [Suspect]
     Active Substance: ALENDRONIC ACID
     Indication: PRODUCT USED FOR UNKNOWN INDICATION
     Dosage: UNK
     Route: 048
     Dates: start: 201401
  4. FOSAMAX [Suspect]
     Active Substance: ALENDRONATE SODIUM
     Indication: OSTEOPOROSIS
     Dosage: 10 MG, UNK
     Route: 048
     Dates: start: 2005
  5. PARACETAMOL [Concomitant]
     Active Substance: ACETAMINOPHEN
     Indication: PRODUCT USED FOR UNKNOWN INDICATION
     Dosage: 0.5
     Route: 065
  6. ALENDRONIC ACID [Suspect]
     Active Substance: ALENDRONIC ACID
     Dosage: UNK
     Route: 048
     Dates: start: 201409
  7. CALCICHEW [Concomitant]
     Active Substance: CALCIUM CARBONATE
     Indication: PRODUCT USED FOR UNKNOWN INDICATION
     Dosage: UNK
     Route: 065
  8. FLORADIX [Concomitant]
     Active Substance: IRON
     Indication: PRODUCT USED FOR UNKNOWN INDICATION
     Dosage: UNK
     Route: 065
  9. SPATONE [Concomitant]
     Indication: PRODUCT USED FOR UNKNOWN INDICATION
     Dosage: UNK
     Route: 065

REACTIONS (19)
  - Chest pain [Unknown]
  - Cystitis-like symptom [Unknown]
  - Medication error [Unknown]
  - Dysphagia [Unknown]
  - Disturbance in attention [Unknown]
  - Spinal compression fracture [Unknown]
  - Dysgraphia [Unknown]
  - General physical health deterioration [Unknown]
  - Eye haemorrhage [Unknown]
  - Food allergy [Unknown]
  - Renal disorder [Unknown]
  - Arthralgia [Unknown]
  - Fall [Unknown]
  - Clavicle fracture [Unknown]
  - Musculoskeletal disorder [Unknown]
  - Pain [Unknown]
  - Wound infection [Unknown]
  - Hypoacusis [Unknown]
  - Loss of consciousness [Unknown]

NARRATIVE: CASE EVENT DATE: 200506
